FAERS Safety Report 9470210 (Version 1)
Quarter: 2013Q3

REPORT INFORMATION
  Report Type: Spontaneous
  Country: JP (occurrence: None)
  Receive Date: 20130815
  Receipt Date: 20130815
  Transmission Date: 20140515
  Serious: Yes (Other)
  Sender: FDA-Public Use
  Company Number: TCI2013A04877

PATIENT
  Age: 61 Year
  Sex: Female

DRUGS (2)
  1. LANSAP 400 [Suspect]
     Indication: HELICOBACTER INFECTION
     Dosage: 1 CARD
     Route: 048
     Dates: start: 20130726, end: 20130801
  2. TAKEPRON (LANSOPRAZOLE) [Suspect]
     Dates: end: 20130803

REACTIONS (4)
  - Stevens-Johnson syndrome [None]
  - Epistaxis [None]
  - Drug-induced liver injury [None]
  - Weight increased [None]
